FAERS Safety Report 4733098-1 (Version None)
Quarter: 2005Q3

REPORT INFORMATION
  Report Type: 
  Country: None (occurrence: None)
  Receive Date: 20050801
  Receipt Date: 20050801
  Transmission Date: 20060218
  Serious: No
  Sender: FDA-Public Use
  Company Number: None

PATIENT
  Age: 43 Year
  Sex: Female

DRUGS (1)
  1. RISPERDAL [Suspect]
     Indication: MANIA
     Dosage: 1MG ORAL
     Route: 048
     Dates: start: 20050402

REACTIONS (4)
  - EXTRAPYRAMIDAL DISORDER [None]
  - OBSTRUCTIVE AIRWAYS DISORDER [None]
  - POSTURE ABNORMAL [None]
  - RESTLESSNESS [None]
